FAERS Safety Report 5348407-2 (Version None)
Quarter: 2007Q2

REPORT INFORMATION
  Report Type: 
  Country: None (occurrence: None)
  Receive Date: 20070606
  Receipt Date: 20070525
  Transmission Date: 20071010
  Serious: Yes (Other)
  Sender: FDA-Public Use
  Company Number: JP-PFIZER INC-2007030085

PATIENT
  Sex: Male
  Weight: 63 kg

DRUGS (4)
  1. HALCION [Suspect]
     Indication: INSOMNIA
     Dosage: DAILY DOSE:25MG
     Route: 048
     Dates: start: 20070404, end: 20070413
  2. SOLDEM 1 [Concomitant]
  3. URSO 250 [Concomitant]
     Dates: start: 20070217
  4. STRONG NEO-MINOPHAGEN C [Concomitant]
     Dates: start: 20070226

REACTIONS (2)
  - BLOOD CREATINE PHOSPHOKINASE INCREASED [None]
  - MYALGIA [None]
